FAERS Safety Report 5029402-X (Version None)
Quarter: 2006Q2

REPORT INFORMATION
  Report Type: 
  Country: None (occurrence: None)
  Receive Date: 20060613
  Receipt Date: 20060605
  Transmission Date: 20061013
  Serious: Yes (Other)
  Sender: FDA-Public Use
  Company Number: 2006072453

PATIENT
  Age: 75 Year
  Sex: Female

DRUGS (3)
  1. DILANTIN [Suspect]
     Indication: NEURALGIA
     Dosage: 300 MG (1 D)
     Dates: start: 19880111, end: 19880225
  2. DYMADON (PARACETAMOL) [Concomitant]
  3. SEREPAX (OXAZEPAM) [Concomitant]

REACTIONS (7)
  - CHILLS [None]
  - HYPERHIDROSIS [None]
  - PHARYNGITIS [None]
  - PRURITUS [None]
  - PYREXIA [None]
  - RASH [None]
  - STOMATITIS [None]
